FAERS Safety Report 16837514 (Version 2)
Quarter: 2021Q2

REPORT INFORMATION
  Report Type: Other
  Country: GB (occurrence: GB)
  Receive Date: 20190923
  Receipt Date: 20210629
  Transmission Date: 20210716
  Serious: Yes (Other)
  Sender: FDA-Public Use
  Company Number: GB-ROCHE-2412456

PATIENT

DRUGS (3)
  1. BEVACIZUMAB. [Suspect]
     Active Substance: BEVACIZUMAB
     Indication: MACULAR OEDEMA
     Dosage: 1.25 MG/0.05 ML
     Route: 050
  2. AFLIBERCEPT [Suspect]
     Active Substance: AFLIBERCEPT
     Indication: MACULAR OEDEMA
     Dosage: 2 MG/0.05 ML
     Route: 050
  3. RANIBIZUMAB. [Suspect]
     Active Substance: RANIBIZUMAB
     Indication: MACULAR OEDEMA
     Dosage: 0.5 MG/0.05 ML
     Route: 050

REACTIONS (24)
  - Gastrointestinal disorder [Unknown]
  - Musculoskeletal disorder [Unknown]
  - Ill-defined disorder [Unknown]
  - Retinal detachment [Unknown]
  - Cerebrovascular accident [Unknown]
  - Respiratory disorder [Unknown]
  - Liver disorder [Unknown]
  - Mental disorder [Unknown]
  - Myocardial infarction [Unknown]
  - Paternal exposure during pregnancy [Unknown]
  - Cardiovascular disorder [Unknown]
  - Nervous system disorder [Unknown]
  - Maternal exposure during pregnancy [Unknown]
  - Urogenital disorder [Unknown]
  - Endocrine disorder [Unknown]
  - Skin disorder [Unknown]
  - Retinal tear [Unknown]
  - Neoplasm [Unknown]
  - Hypersensitivity [Unknown]
  - Eye disorder [Unknown]
  - Retinal vein occlusion [Unknown]
  - Blood disorder [Unknown]
  - Immune system disorder [Unknown]
  - Endophthalmitis [Unknown]
